FAERS Safety Report 17154837 (Version 1)
Quarter: 2019Q4

REPORT INFORMATION
  Report Type: Report from Study
  Country: US (occurrence: US)
  Receive Date: 20191214
  Receipt Date: 20191214
  Transmission Date: 20200122
  Serious: No
  Sender: FDA-Public Use
  Company Number: NVSC2019US028445

PATIENT
  Age: 57 Year
  Sex: Female

DRUGS (1)
  1. COSENTYX [Suspect]
     Active Substance: SECUKINUMAB
     Indication: PSORIASIS
     Dosage: 300 MG
     Route: 058
     Dates: start: 20190727

REACTIONS (5)
  - Skin plaque [Unknown]
  - Dry skin [Unknown]
  - Eyelid margin crusting [Unknown]
  - Ear haemorrhage [Unknown]
  - Blister [Unknown]

NARRATIVE: CASE EVENT DATE: 20190921
